FAERS Safety Report 15689119 (Version 1)
Quarter: 2018Q4

REPORT INFORMATION
  Report Type: Spontaneous
  Country: AT (occurrence: AT)
  Receive Date: 20181205
  Receipt Date: 20181205
  Transmission Date: 20190205
  Serious: Yes (Other)
  Sender: FDA-Public Use
  Company Number: AT-009507513-1812AUT001010

PATIENT
  Age: 65 Year
  Sex: Female
  Weight: 58 kg

DRUGS (10)
  1. ARTHROTEC [Suspect]
     Active Substance: DICLOFENAC SODIUM\MISOPROSTOL
  2. SIMVASTATIN. [Concomitant]
     Active Substance: SIMVASTATIN
  3. SIRDALUD [Concomitant]
     Active Substance: TIZANIDINE
  4. VASONIT [PENTOXIFYLLINE] [Suspect]
     Active Substance: PENTOXIFYLLINE
     Indication: MACULAR DEGENERATION
     Dosage: 1-0-1
     Dates: start: 2018, end: 20181106
  5. EZETIMIB [Suspect]
     Active Substance: EZETIMIBE
  6. PRAXITEN [Concomitant]
     Active Substance: OXAZEPAM
  7. MENCORD [Concomitant]
     Active Substance: OLMESARTAN MEDOXOMIL
  8. EUTHYROX [Concomitant]
     Active Substance: LEVOTHYROXINE SODIUM
  9. EZETROL [Suspect]
     Active Substance: EZETIMIBE
     Route: 048
  10. ASPIRIN. [Concomitant]
     Active Substance: ASPIRIN

REACTIONS (9)
  - Skin exfoliation [Recovering/Resolving]
  - Oedema mucosal [Recovering/Resolving]
  - Mucosa vesicle [Recovering/Resolving]
  - Discomfort [Recovered/Resolved]
  - Oral mucosal exfoliation [Recovering/Resolving]
  - Weight decreased [Recovering/Resolving]
  - Tongue blistering [Recovering/Resolving]
  - Tongue discomfort [Recovering/Resolving]
  - Dysphagia [Recovering/Resolving]

NARRATIVE: CASE EVENT DATE: 201808
